FAERS Safety Report 13955605 (Version 4)
Quarter: 2019Q2

REPORT INFORMATION
  Report Type: Report from Study
  Country: CO (occurrence: CO)
  Receive Date: 20170911
  Receipt Date: 20190527
  Transmission Date: 20190711
  Serious: Yes (Death, Hospitalization)
  Sender: FDA-Public Use
  Company Number: CO-ACTELION-A-CH2017-158631

PATIENT
  Age: 16 Year
  Sex: Female
  Weight: 39 kg

DRUGS (4)
  1. SILDENAFIL. [Concomitant]
     Active Substance: SILDENAFIL
     Indication: PULMONARY ARTERIAL HYPERTENSION
     Dosage: 50 MG, TID
     Route: 048
  2. TREPROSTINIL. [Concomitant]
     Active Substance: TREPROSTINIL
     Route: 058
  3. SPIRONOLACTONE. [Concomitant]
     Active Substance: SPIRONOLACTONE
     Indication: FLUID RETENTION
     Dosage: 24 MG, QD
     Route: 048
  4. OPSUMIT [Suspect]
     Active Substance: MACITENTAN
     Indication: PULMONARY ARTERIAL HYPERTENSION
     Dosage: 10 MG, QD
     Route: 048
     Dates: start: 20150615, end: 2019

REACTIONS (18)
  - Pain in extremity [Not Recovered/Not Resolved]
  - Weight decreased [Not Recovered/Not Resolved]
  - Myalgia [Recovering/Resolving]
  - Chest pain [Not Recovered/Not Resolved]
  - Therapy non-responder [Unknown]
  - Dyspnoea exertional [Unknown]
  - Decreased appetite [Not Recovered/Not Resolved]
  - Insomnia [Not Recovered/Not Resolved]
  - Cardio-respiratory arrest [Fatal]
  - Somnolence [Not Recovered/Not Resolved]
  - Depression [Not Recovered/Not Resolved]
  - General physical health deterioration [Not Recovered/Not Resolved]
  - Nausea [Recovering/Resolving]
  - Fatigue [Not Recovered/Not Resolved]
  - Headache [Recovering/Resolving]
  - Muscle atrophy [Not Recovered/Not Resolved]
  - Crying [Not Recovered/Not Resolved]
  - Back pain [Not Recovered/Not Resolved]

NARRATIVE: CASE EVENT DATE: 20170615
